FAERS Safety Report 19610309 (Version 1)
Quarter: 2021Q3

REPORT INFORMATION
  Report Type: Report from Study
  Country: None (occurrence: GR)
  Receive Date: 20210726
  Receipt Date: 20210726
  Transmission Date: 20211014
  Serious: Yes (Death)
  Sender: FDA-Public Use
  Company Number: GR-ABBVIE-21K-066-4006656-00

PATIENT
  Age: 71 Year
  Sex: Female
  Weight: 48 kg

DRUGS (7)
  1. NEUROBION [Concomitant]
     Active Substance: CYANOCOBALAMIN\PYRIDOXINE\THIAMINE
     Indication: PRODUCT USED FOR UNKNOWN INDICATION
     Route: 048
  2. MIRAPEXIN [Concomitant]
     Active Substance: PRAMIPEXOLE
     Indication: PARKINSON^S DISEASE
     Route: 048
  3. DUODOPA [Suspect]
     Active Substance: CARBIDOPA\LEVODOPA
  4. CILROTON [Concomitant]
     Active Substance: DOMPERIDONE
     Indication: PRODUCT USED FOR UNKNOWN INDICATION
     Route: 048
  5. FILICINE [Concomitant]
     Active Substance: FOLIC ACID
     Indication: PRODUCT USED FOR UNKNOWN INDICATION
     Route: 048
  6. DUODOPA [Suspect]
     Active Substance: CARBIDOPA\LEVODOPA
     Indication: PARKINSON^S DISEASE
     Dosage: MORNING DOSE: 10 ML; CONTINUOUS RATE: 2.5 ML/H; EXTRA DOSE: 1.7 ML
     Route: 050
     Dates: start: 20160921
  7. SYMMETREL [Concomitant]
     Active Substance: AMANTADINE HYDROCHLORIDE
     Indication: PARKINSON^S DISEASE
     Route: 048

REACTIONS (1)
  - Gastric ulcer [Fatal]
